FAERS Safety Report 13780149 (Version 2)
Quarter: 2017Q4

REPORT INFORMATION
  Report Type: Report from Study
  Country: US (occurrence: US)
  Receive Date: 20170724
  Receipt Date: 20171227
  Transmission Date: 20180320
  Serious: Yes (Hospitalization, Other)
  Sender: FDA-Public Use
  Company Number: US-ROCHE-1964957

PATIENT
  Age: 67 Year
  Sex: Female
  Weight: 72.2 kg

DRUGS (1)
  1. TRASTUZUMAB EMTANSINE [Suspect]
     Active Substance: ADO-TRASTUZUMAB EMTANSINE
     Indication: HER-2 POSITIVE BREAST CANCER
     Dosage: 17 CYCLES?DATE OF MOST RECENT DOSE PRIOR TO SAE ONSET: 17/JUL/2017 (284 MG)
     Route: 042
     Dates: start: 20161128

REACTIONS (2)
  - Rash maculo-papular [Unknown]
  - Lower gastrointestinal haemorrhage [Recovered/Resolved]

NARRATIVE: CASE EVENT DATE: 20170730
